FAERS Safety Report 6718595-1 (Version None)
Quarter: 2010Q2

REPORT INFORMATION
  Report Type: 
  Country: None (occurrence: None)
  Receive Date: 20100510
  Receipt Date: 20100430
  Transmission Date: 20101027
  Serious: Yes (Hospitalization, Other)
  Sender: FDA-Public Use
  Company Number: US-AMGEN-QUU409937

PATIENT
  Sex: Female

DRUGS (1)
  1. ENBREL [Suspect]
     Indication: PSORIATIC ARTHROPATHY
     Dates: start: 20021206

REACTIONS (6)
  - FUNGAL INFECTION [None]
  - GALLBLADDER OPERATION [None]
  - GASTROINTESTINAL INFECTION [None]
  - ORAL DISORDER [None]
  - SINUSITIS [None]
  - SKIN LESION [None]
